FAERS Safety Report 20762954 (Version 5)
Quarter: 2022Q4

REPORT INFORMATION
  Report Type: Spontaneous
  Country: GB (occurrence: GB)
  Receive Date: 20220428
  Receipt Date: 20221221
  Transmission Date: 20230113
  Serious: Yes (Death, Other)
  Sender: FDA-Public Use
  Company Number: GB-ROCHE-3085093

PATIENT
  Age: 66 Year
  Sex: Female

DRUGS (22)
  1. TOCILIZUMAB [Suspect]
     Active Substance: TOCILIZUMAB
     Indication: Immune effector cell-associated neurotoxicity syndrome
     Route: 065
  2. TOCILIZUMAB [Suspect]
     Active Substance: TOCILIZUMAB
     Indication: Cytokine release syndrome
     Dosage: 4 TIMES
     Route: 065
     Dates: start: 20200113, end: 20200120
  3. DEXAMETHASONE [Suspect]
     Active Substance: DEXAMETHASONE
     Indication: Immune effector cell-associated neurotoxicity syndrome
     Route: 065
  4. DEXAMETHASONE [Suspect]
     Active Substance: DEXAMETHASONE
     Route: 065
     Dates: start: 20200121
  5. ANAKINRA [Suspect]
     Active Substance: ANAKINRA
     Indication: Immune effector cell-associated neurotoxicity syndrome
     Route: 065
  6. ANAKINRA [Suspect]
     Active Substance: ANAKINRA
     Indication: Lymphocyte adoptive therapy
     Route: 065
     Dates: start: 20200124
  7. ANAKINRA [Suspect]
     Active Substance: ANAKINRA
     Indication: Myasthenic syndrome
  8. METHYLPREDNISOLONE [Suspect]
     Active Substance: METHYLPREDNISOLONE
     Indication: Immune effector cell-associated neurotoxicity syndrome
     Route: 065
  9. METHYLPREDNISOLONE [Suspect]
     Active Substance: METHYLPREDNISOLONE
     Route: 065
  10. METHYLPREDNISOLONE [Suspect]
     Active Substance: METHYLPREDNISOLONE
     Route: 065
  11. SYLVANT [Suspect]
     Active Substance: SILTUXIMAB
     Indication: Cytokine release syndrome
     Dosage: LYOPHILIZED POWDER FOR INJECTABLE SOLUTION
     Route: 042
     Dates: start: 20191230
  12. SYLVANT [Suspect]
     Active Substance: SILTUXIMAB
     Dosage: LYOPHILIZED POWDER FOR INJECTABLE SOLUTION
     Route: 042
     Dates: start: 20200210
  13. METOCLOPRAMIDE [Concomitant]
     Active Substance: METOCLOPRAMIDE
     Indication: Lymphocyte adoptive therapy
     Route: 065
     Dates: start: 20200103
  14. FILGRASTIM [Concomitant]
     Active Substance: FILGRASTIM
     Indication: Lymphocyte adoptive therapy
     Dates: start: 20200130
  15. ONDANSETRON [Concomitant]
     Active Substance: ONDANSETRON
     Indication: Lymphocyte adoptive therapy
     Route: 065
     Dates: start: 20200103
  16. CIPROFLOXACIN [Concomitant]
     Active Substance: CIPROFLOXACIN
     Indication: Lymphocyte adoptive therapy
     Route: 065
     Dates: start: 20200103
  17. AZATHIOPRINE [Concomitant]
     Active Substance: AZATHIOPRINE
     Route: 065
  18. FILGRASTIM [Concomitant]
     Active Substance: FILGRASTIM
     Indication: Lymphocyte adoptive therapy
     Route: 065
     Dates: start: 20200130
  19. FLUCONAZOLE [Concomitant]
     Active Substance: FLUCONAZOLE
     Indication: Lymphocyte adoptive therapy
     Route: 065
     Dates: start: 20200106
  20. PREDNISOLONE [Concomitant]
     Active Substance: PREDNISOLONE
     Indication: Myasthenic syndrome
     Route: 065
     Dates: start: 20200210
  21. ACYCLOVIR [Concomitant]
     Active Substance: ACYCLOVIR
     Indication: Lymphocyte adoptive therapy
     Route: 065
     Dates: start: 20200108
  22. LEVETIRACETAM [Concomitant]
     Active Substance: LEVETIRACETAM
     Route: 065
     Dates: start: 20200108

REACTIONS (8)
  - Toxicity to various agents [Fatal]
  - Off label use [Fatal]
  - Condition aggravated [Unknown]
  - Immune effector cell-associated neurotoxicity syndrome [Unknown]
  - Cytokine release syndrome [Unknown]
  - Diffuse large B-cell lymphoma [Fatal]
  - Disease progression [Fatal]
  - Neoplasm progression [Fatal]

NARRATIVE: CASE EVENT DATE: 20200301
